FAERS Safety Report 7962936 (Version 2)
Quarter: 2012Q4

REPORT INFORMATION
  Report Type: Spontaneous
  Country: US (occurrence: None)
  Receive Date: 20110505
  Receipt Date: 20121005
  Transmission Date: 20130627
  Serious: Yes (Death, Other)
  Sender: FDA-Public Use
  Company Number: 2011MA004514

PATIENT
  Sex: Male

DRUGS (1)
  1. METOCLOPRAMIDE [Suspect]
     Dosage: 10 mg; AC + HS
     Dates: start: 20080210, end: 20090701

REACTIONS (7)
  - Tardive dyskinesia [None]
  - Extrapyramidal disorder [None]
  - Injury [None]
  - Economic problem [None]
  - Emotional disorder [None]
  - Family stress [None]
  - Renal failure chronic [None]
